FAERS Safety Report 6898104-7 (Version None)
Quarter: 2010Q3

REPORT INFORMATION
  Report Type: 
  Country: None (occurrence: None)
  Receive Date: 20100802
  Receipt Date: 20070912
  Transmission Date: 20110219
  Serious: No
  Sender: FDA-Public Use
  Company Number: US-PFIZER INC-2007076764

PATIENT
  Sex: Male
  Weight: 65.909 kg

DRUGS (3)
  1. LYRICA [Suspect]
     Indication: PAIN
     Route: 048
     Dates: start: 20050101
  2. CYMBALTA [Concomitant]
  3. AMBIEN [Concomitant]

REACTIONS (1)
  - WEIGHT INCREASED [None]
